FAERS Safety Report 11316893 (Version 1)
Quarter: 2015Q3

REPORT INFORMATION
  Report Type: Spontaneous
  Country: US (occurrence: None)
  Receive Date: 20150727
  Receipt Date: 20150727
  Transmission Date: 20151125
  Serious: Yes (Death)
  Sender: FDA-Public Use
  Company Number: None

PATIENT
  Age: 69 Year
  Sex: Male
  Weight: 78.02 kg

DRUGS (6)
  1. PREDNISONE. [Concomitant]
     Active Substance: PREDNISONE
  2. SKELAXIN [Concomitant]
     Active Substance: METAXALONE
  3. BACLOFEN. [Concomitant]
     Active Substance: BACLOFEN
  4. RITUXAN [Suspect]
     Active Substance: RITUXIMAB
     Indication: CHRONIC LYMPHOCYTIC LEUKAEMIA
     Dosage: INTO A VEIN
     Dates: start: 20150713, end: 20150723
  5. ALLOPURINOL. [Concomitant]
     Active Substance: ALLOPURINOL
  6. ALEVE [Concomitant]
     Active Substance: NAPROXEN SODIUM

REACTIONS (3)
  - Pneumonia [None]
  - Infection [None]
  - Sepsis [None]

NARRATIVE: CASE EVENT DATE: 20150723
